FAERS Safety Report 10289447 (Version 1)
Quarter: 2014Q3

REPORT INFORMATION
  Report Type: Spontaneous
  Country: US (occurrence: None)
  Receive Date: 20140707
  Receipt Date: 20140707
  Transmission Date: 20150326
  Serious: Yes (Hospitalization, Other)
  Sender: FDA-Public Use
  Company Number: UNT-2014-002929

PATIENT
  Age: 42 Year
  Sex: Male
  Weight: 81.6 kg

DRUGS (1)
  1. TYVASO [Suspect]
     Active Substance: TREPROSTINIL
     Indication: COR PULMONALE CHRONIC
     Route: 055

REACTIONS (3)
  - Pneumonia [None]
  - Dyspnoea [None]
  - Respiratory tract infection [None]

NARRATIVE: CASE EVENT DATE: 20140619
